FAERS Safety Report 8336950-3 (Version None)
Quarter: 2012Q2

REPORT INFORMATION
  Report Type: 
  Country: None (occurrence: None)
  Receive Date: 20120504
  Receipt Date: 20120319
  Transmission Date: 20120825
  Serious: No
  Sender: FDA-Public Use
  Company Number: US-GLAXOSMITHKLINE-A0970358A

PATIENT
  Sex: Female

DRUGS (9)
  1. ATROVENT [Concomitant]
  2. TEMAZEPAM [Concomitant]
  3. SPIRONOLACTONE [Concomitant]
  4. PRAVASTATIN [Concomitant]
  5. SUPPLEMENT [Concomitant]
  6. LISINOPRIL [Concomitant]
  7. FORADIL [Concomitant]
  8. HORIZANT [Suspect]
     Indication: BACK PAIN
     Dosage: 600TAB PER DAY
     Route: 048
     Dates: start: 20120317
  9. FUROSEMIDE [Concomitant]

REACTIONS (2)
  - IMPAIRED DRIVING ABILITY [None]
  - FEELING DRUNK [None]
